FAERS Safety Report 7367413-X (Version None)
Quarter: 2011Q1

REPORT INFORMATION
  Report Type: 
  Country: None (occurrence: None)
  Receive Date: 20110322
  Receipt Date: 20110316
  Transmission Date: 20110831
  Serious: Yes (Death, Hospitalization)
  Sender: FDA-Public Use
  Company Number: DE-GENZYME-RENA-1001073

PATIENT
  Sex: Male
  Weight: 70.5 kg

DRUGS (13)
  1. ALLOPURINOL [Concomitant]
     Indication: PROPHYLAXIS
     Dosage: 100 MG, QD
     Dates: start: 20100102
  2. RENAGEL [Suspect]
     Dosage: 0.8 G, UNK
     Route: 048
  3. TORSEMIDE [Concomitant]
     Indication: PRODUCT USED FOR UNKNOWN INDICATION
     Dosage: UNK
  4. BETA BLOCKING AGENTS [Concomitant]
     Indication: PRODUCT USED FOR UNKNOWN INDICATION
  5. CLOPIDOGREL [Suspect]
     Indication: VASCULAR GRAFT
     Dosage: UNK
  6. ANGIOTENSIN II ANTAGONISTS [Concomitant]
     Indication: PRODUCT USED FOR UNKNOWN INDICATION
  7. DIURETICS [Concomitant]
     Indication: PRODUCT USED FOR UNKNOWN INDICATION
  8. CALCET [Concomitant]
     Indication: HYPERPHOSPHATAEMIA
     Dosage: UNK
  9. EPOGEN [Concomitant]
     Indication: PRODUCT USED FOR UNKNOWN INDICATION
  10. PANTOPRAZOLE [Concomitant]
     Indication: GASTRODUODENITIS
     Dosage: 80 MG, QD
     Dates: start: 20100704
  11. RENAGEL [Suspect]
     Indication: HYPERPHOSPHATAEMIA
     Dosage: 2.4 G, QD
     Route: 048
     Dates: start: 20091211, end: 20100718
  12. CALCIUM CHANNEL BLOCKERS [Concomitant]
     Indication: PRODUCT USED FOR UNKNOWN INDICATION
  13. IRON [Concomitant]
     Indication: PRODUCT USED FOR UNKNOWN INDICATION

REACTIONS (2)
  - PERIPHERAL ARTERIAL OCCLUSIVE DISEASE [None]
  - CEREBRAL HAEMORRHAGE [None]
